FAERS Safety Report 14155993 (Version 3)
Quarter: 2018Q1

REPORT INFORMATION
  Report Type: Spontaneous
  Country: US (occurrence: US)
  Receive Date: 20171103
  Receipt Date: 20180221
  Transmission Date: 20180508
  Serious: Yes (Other)
  Sender: FDA-Public Use
  Company Number: US-BAYER-2017-212457

PATIENT
  Age: 21 Year
  Sex: Female
  Weight: 73.47 kg

DRUGS (3)
  1. MIRENA [Suspect]
     Active Substance: LEVONORGESTREL
     Indication: CONTRACEPTION
     Dosage: 20 MCG/24HR, CONT
     Route: 015
     Dates: start: 20171023, end: 20171023
  2. MIRENA [Suspect]
     Active Substance: LEVONORGESTREL
  3. BETADINE [Concomitant]
     Active Substance: POVIDONE-IODINE
     Dosage: UNK
     Dates: start: 20171023, end: 20171023

REACTIONS (1)
  - Embedded device [None]

NARRATIVE: CASE EVENT DATE: 20171023
